FAERS Safety Report 4929887-0 (Version None)
Quarter: 2006Q1

REPORT INFORMATION
  Report Type: 
  Country: None (occurrence: None)
  Receive Date: 20060227
  Receipt Date: 20060214
  Transmission Date: 20060701
  Serious: Yes (Hospitalization)
  Sender: FDA-Public Use
  Company Number: 2005040008

PATIENT
  Age: 70 Year
  Sex: Female

DRUGS (18)
  1. SILDENAFIL CITRATE (SILDENAFIL CITRATE) [Suspect]
     Indication: PULMONARY HYPERTENSION
     Dosage: 60 MG (20 MG, 3 IN 1 D), ORAL
     Route: 048
     Dates: start: 20050301
  2. PROSTACYCLIN (EPOPROSTENOL) [Suspect]
  3. POTASSIUM CHLORIDE [Concomitant]
  4. LEVOTHYROXINE SODIUM [Concomitant]
  5. BUPROPION HCL [Concomitant]
  6. MAGNESIUM (MAGNESIUM) [Concomitant]
  7. LASIX [Concomitant]
  8. WARFARIN SODIUM [Concomitant]
  9. LISINOPRIL [Concomitant]
  10. DIGOXIN [Concomitant]
  11. PANTOPRAZOLE SODIUM [Concomitant]
  12. GLIPIZIDE [Concomitant]
  13. LOPRESSOR [Concomitant]
  14. GOLD (GOLD) [Concomitant]
  15. LIPITOR [Concomitant]
  16. GEMFIBROZIL [Concomitant]
  17. BECONASE (BECLOMETASONE DIPROPIONATE) [Concomitant]
  18. OXYGEN (OXYGEN) [Concomitant]

REACTIONS (4)
  - INFECTION [None]
  - NAUSEA [None]
  - RASH [None]
  - THROMBOSIS [None]
